FAERS Safety Report 4407925-1 (Version None)
Quarter: 2004Q3

REPORT INFORMATION
  Report Type: 
  Country: None (occurrence: None)
  Receive Date: 20040721
  Receipt Date: 20040708
  Transmission Date: 20050211
  Serious: Yes (Other)
  Sender: FDA-Public Use
  Company Number: WAES 0407GBR00105

PATIENT

DRUGS (4)
  1. COSMEGEN [Suspect]
     Indication: NEPHROBLASTOMA
     Dosage: 1.5 MG/M[2]/3XW
     Route: 042
  2. DOXORUBICIN HCL [Concomitant]
  3. HALOTHANE [Concomitant]
  4. VINCRISTINE SULFATE [Concomitant]

REACTIONS (15)
  - ALANINE AMINOTRANSFERASE INCREASED [None]
  - ASCITES [None]
  - ASPARTATE AMINOTRANSFERASE INCREASED [None]
  - BIOPSY LIVER ABNORMAL [None]
  - BLOOD ALBUMIN DECREASED [None]
  - BLOOD BILIRUBIN INCREASED [None]
  - BLOOD FIBRINOGEN INCREASED [None]
  - EPISTAXIS [None]
  - HAEMANGIOMA-THROMBOCYTOPENIA SYNDROME [None]
  - HAEMOGLOBIN DECREASED [None]
  - HEPATITIS A ANTIBODY POSITIVE [None]
  - HEPATOMEGALY [None]
  - NEUTROPHIL COUNT DECREASED [None]
  - PROTHROMBIN TIME PROLONGED [None]
  - WHITE BLOOD CELL COUNT DECREASED [None]
